FAERS Safety Report 24645007 (Version 2)
Quarter: 2025Q3

REPORT INFORMATION
  Report Type: Spontaneous
  Country: US (occurrence: US)
  Receive Date: 20241121
  Receipt Date: 20250816
  Transmission Date: 20251020
  Serious: No
  Sender: ALEXION PHARMACEUTICALS
  Company Number: US-AstraZeneca-CH-00751276A

PATIENT
  Sex: Female

DRUGS (1)
  1. WAINUA [Suspect]
     Active Substance: EPLONTERSEN
     Indication: Amyloidosis
     Dates: start: 20240619

REACTIONS (2)
  - Protein urine [Recovering/Resolving]
  - Vitamin A decreased [Recovering/Resolving]
